FAERS Safety Report 11823461 (Version 2)
Quarter: 2016Q1

REPORT INFORMATION
  Report Type: Report from Study
  Country: BR (occurrence: BR)
  Receive Date: 20151210
  Receipt Date: 20160308
  Transmission Date: 20160525
  Serious: Yes (Other)
  Sender: FDA-Public Use
  Company Number: PHHY2015BR161137

PATIENT
  Sex: Male
  Weight: 68 kg

DRUGS (1)
  1. EXELON PATCH [Suspect]
     Active Substance: RIVASTIGMINE
     Indication: DEMENTIA ALZHEIMER^S TYPE
     Dosage: PATCH 15 (CM2)
     Route: 062

REACTIONS (4)
  - Hypersensitivity [Not Recovered/Not Resolved]
  - Application site hypersensitivity [Not Recovered/Not Resolved]
  - Dementia Alzheimer^s type [Recovered/Resolved]
  - Swelling [Not Recovered/Not Resolved]
